FAERS Safety Report 13900595 (Version 2)
Quarter: 2018Q1

REPORT INFORMATION
  Report Type: Report from Study
  Country: US (occurrence: US)
  Receive Date: 20170824
  Receipt Date: 20180223
  Transmission Date: 20180508
  Serious: Yes (Death, Hospitalization, Other)
  Sender: FDA-Public Use
  Company Number: US-BAYER-2017-104357

PATIENT
  Age: 56 Year
  Sex: Male

DRUGS (5)
  1. BUMETANIDE. [Concomitant]
     Active Substance: BUMETANIDE
  2. LOSARTAN POTASSIUM. [Concomitant]
     Active Substance: LOSARTAN POTASSIUM
  3. SPIRONOLACTONE. [Concomitant]
     Active Substance: SPIRONOLACTONE
  4. TOPROL XL [Concomitant]
     Active Substance: METOPROLOL SUCCINATE
  5. NEXAVAR [Suspect]
     Active Substance: SORAFENIB
     Indication: HEPATOCELLULAR CARCINOMA
     Dosage: 200 MG, BID
     Route: 048
     Dates: start: 20170210

REACTIONS (4)
  - Hospitalisation [None]
  - Renal disorder [None]
  - Death [Fatal]
  - Cholelithiasis [None]

NARRATIVE: CASE EVENT DATE: 201708
